FAERS Safety Report 12978215 (Version 5)
Quarter: 2017Q2

REPORT INFORMATION
  Report Type: Spontaneous
  Country: US (occurrence: US)
  Receive Date: 20161128
  Receipt Date: 20170418
  Transmission Date: 20170830
  Serious: Yes (Hospitalization, Other)
  Sender: FDA-Public Use
  Company Number: US-ASTELLAS-2016US045567

PATIENT
  Sex: Male

DRUGS (1)
  1. XTANDI [Suspect]
     Active Substance: ENZALUTAMIDE
     Indication: PROSTATE CANCER
     Route: 048
     Dates: start: 20161027

REACTIONS (8)
  - Pleural effusion [Unknown]
  - Vision blurred [Unknown]
  - Peripheral swelling [Recovered/Resolved]
  - Fluid retention [Recovered/Resolved]
  - Lacrimation increased [Unknown]
  - Dysgeusia [Unknown]
  - Constipation [Unknown]
  - Onychoclasis [Unknown]
